FAERS Safety Report 5892617-2 (Version None)
Quarter: 2008Q3

REPORT INFORMATION
  Report Type: 
  Country: None (occurrence: None)
  Receive Date: 20080919
  Receipt Date: 20080919
  Transmission Date: 20090109
  Serious: No
  Sender: FDA-Public Use
  Company Number: None

PATIENT
  Age: 29 Year
  Sex: Female
  Weight: 58.9676 kg

DRUGS (2)
  1. ARREST SUNSPOT TREATMENT 1% TOLNSFTATE SUNWEST. SAN JOSE, CA [Suspect]
     Indication: EPHELIDES
     Dosage: APPLY LIBERALLY TO AFFECTED AFTER SHOWERING+PM TOP
     Route: 061
     Dates: start: 20080916, end: 20080917
  2. ARREST SUNSPOT TREATMENT 1% TOLNSFTATE SUNWEST. SAN JOSE, CA [Suspect]
     Indication: FUNGAL SKIN INFECTION
     Dosage: APPLY LIBERALLY TO AFFECTED AFTER SHOWERING+PM TOP
     Route: 061
     Dates: start: 20080916, end: 20080917

REACTIONS (3)
  - APPLICATION SITE RASH [None]
  - PRURITUS [None]
  - RASH MACULO-PAPULAR [None]
